FAERS Safety Report 9723622 (Version 1)
Quarter: 2013Q4

REPORT INFORMATION
  Report Type: Spontaneous
  Country: CA (occurrence: CA)
  Receive Date: 20131202
  Receipt Date: 20131202
  Transmission Date: 20140711
  Serious: Yes (Life-Threatening, Hospitalization, Other)
  Sender: FDA-Public Use
  Company Number: CA-GLAXOSMITHKLINE-A1049173A

PATIENT
  Age: 61 Year
  Sex: Male
  Weight: 83 kg

DRUGS (2)
  1. VOTRIENT [Suspect]
     Indication: RENAL CANCER METASTATIC
     Dosage: 800MG PER DAY
     Route: 065
     Dates: start: 20131107, end: 20131111
  2. RIVAROXABAN [Suspect]
     Indication: PULMONARY EMBOLISM
     Dosage: 15MG TWICE PER DAY
     Route: 065
     Dates: start: 20131101, end: 20131104

REACTIONS (6)
  - Gastrointestinal haemorrhage [Not Recovered/Not Resolved]
  - Abnormal faeces [Unknown]
  - Faeces discoloured [Unknown]
  - Diarrhoea [Unknown]
  - Fatigue [Unknown]
  - Tumour invasion [Unknown]
